FAERS Safety Report 8190463-0 (Version None)
Quarter: 2012Q1

REPORT INFORMATION
  Report Type: 
  Country: None (occurrence: None)
  Receive Date: 20120307
  Receipt Date: 20120212
  Transmission Date: 20120608
  Serious: Yes (Death)
  Sender: FDA-Public Use
  Company Number: PHHY2012US018742

PATIENT
  Age: 56 Year
  Sex: Male

DRUGS (3)
  1. CYCLOSPORINE [Suspect]
     Indication: LUNG TRANSPLANT
     Dosage: UNK UKN, UNK
  2. PREDNISONE TAB [Suspect]
     Indication: LUNG TRANSPLANT
     Dosage: UNK UKN, UNK
  3. AZATHIOPRINE [Suspect]
     Indication: LUNG TRANSPLANT
     Dosage: UNK UKN, UNK

REACTIONS (3)
  - POST TRANSPLANT LYMPHOPROLIFERATIVE DISORDER [None]
  - EPSTEIN-BARR VIRUS INFECTION [None]
  - PNEUMONIA [None]
